FAERS Safety Report 4991044-X (Version None)
Quarter: 2006Q2

REPORT INFORMATION
  Report Type: 
  Country: None (occurrence: None)
  Receive Date: 20060428
  Receipt Date: 20060419
  Transmission Date: 20061013
  Serious: Yes (Death)
  Sender: FDA-Public Use
  Company Number: 200611615GDS

PATIENT
  Age: 58 Year
  Sex: Female

DRUGS (6)
  1. ASPIRIN [Suspect]
     Dosage: 100 MG QD ORAL
     Route: 048
     Dates: start: 20060101, end: 20060207
  2. FRAXIPARINA (NADROPARIN CALCIUM) [Suspect]
     Indication: DEEP VEIN THROMBOSIS
     Dosage: 3800 IU QD SUBCUTANEOUS
     Route: 058
     Dates: start: 20060206, end: 20060207
  3. GLYBURIDE AND METFORMIN HCL [Concomitant]
  4. TRIATEC [Concomitant]
  5. FERROGRAD C [Concomitant]
  6. NESPO [Concomitant]

REACTIONS (5)
  - BLOOD PRESSURE INCREASED [None]
  - CEREBRAL HAEMATOMA [None]
  - CEREBRAL HAEMORRHAGE [None]
  - COMA [None]
  - EFFUSION [None]
